FAERS Safety Report 7555234-4 (Version None)
Quarter: 2011Q2

REPORT INFORMATION
  Report Type: 
  Country: None (occurrence: None)
  Receive Date: 20110617
  Receipt Date: 20110610
  Transmission Date: 20111010
  Serious: Yes (Hospitalization)
  Sender: FDA-Public Use
  Company Number: US-US-EMD SERONO, INC.-7001047

PATIENT
  Sex: Female
  Weight: 96 kg

DRUGS (6)
  1. OXYCONTIN [Concomitant]
     Indication: BACK PAIN
  2. UNSPECIFIED MEDICATIONS [TOO MANY TO LIST] [Concomitant]
  3. REBIF [Suspect]
     Route: 058
     Dates: start: 20100901, end: 20101201
  4. LIDOCAINE [Concomitant]
     Indication: BACK PAIN
  5. REBIF [Suspect]
     Indication: MULTIPLE SCLEROSIS
     Route: 058
     Dates: start: 20081111, end: 20100501
  6. REBIF [Suspect]
     Route: 058
     Dates: start: 20110101

REACTIONS (9)
  - PNEUMONIA [None]
  - INFLUENZA LIKE ILLNESS [None]
  - SINUS CONGESTION [None]
  - FALL [None]
  - BENIGN OVARIAN TUMOUR [None]
  - ENDOMETRIAL HYPERTROPHY [None]
  - BACK PAIN [None]
  - GASTROINTESTINAL INFECTION [None]
  - GASTROENTERITIS VIRAL [None]
